FAERS Safety Report 7746934-1 (Version None)
Quarter: 2011Q3

REPORT INFORMATION
  Report Type: 
  Country: None (occurrence: None)
  Receive Date: 20110913
  Receipt Date: 20110902
  Transmission Date: 20111222
  Serious: Yes (Death)
  Sender: FDA-Public Use
  Company Number: US-CELGENEUS-163-21880-11090479

PATIENT
  Sex: Male
  Weight: 83.536 kg

DRUGS (8)
  1. REVLIMID [Suspect]
     Dosage: 25 MILLIGRAM
     Route: 048
     Dates: start: 20110806, end: 20110827
  2. POTASSIUM CHLORIDE [Concomitant]
     Indication: MINERAL SUPPLEMENTATION
     Dosage: 20 MILLIEQUIVALENTS
     Route: 048
  3. METAMUCIL-2 [Concomitant]
     Dosage: 1 TEASPOON
     Route: 065
  4. PHENERGAN HCL [Concomitant]
     Indication: PROPHYLAXIS
     Dosage: 25 MILLIGRAM
     Route: 048
  5. MEGACE [Concomitant]
     Indication: CACHEXIA
  6. POTASSIUM CHLORIDE [Concomitant]
  7. CHROMAGEN [Concomitant]
     Indication: MINERAL SUPPLEMENTATION
     Dosage: 1 CAPSULE
     Route: 048
  8. MEGACE [Concomitant]
     Dosage: 1 TEASPOON
     Route: 065

REACTIONS (1)
  - MULTIPLE MYELOMA [None]
